FAERS Safety Report 8716379 (Version 3)
Quarter: 2013Q1

REPORT INFORMATION
  Report Type: Spontaneous
  Country: US (occurrence: US)
  Receive Date: 20120810
  Receipt Date: 20130130
  Transmission Date: 20140127
  Serious: No
  Sender: FDA-Public Use
  Company Number: US-009507513-1207USA011435

PATIENT
  Sex: Female
  Weight: 48.98 kg

DRUGS (2)
  1. DULERA [Suspect]
     Indication: ASTHMA
     Dosage: 1 DF, BID
     Route: 055
     Dates: start: 201202
  2. VENTOLIN (ALBUTEROL) [Concomitant]

REACTIONS (2)
  - Product quality issue [Unknown]
  - No adverse event [Unknown]
